FAERS Safety Report 26116632 (Version 1)
Quarter: 2025Q4

REPORT INFORMATION
  Report Type: Spontaneous
  Country: US (occurrence: US)
  Receive Date: 20251203
  Receipt Date: 20251203
  Transmission Date: 20260117
  Serious: No
  Sender: BIOCRYST PHARMACEUTICALS
  Company Number: US-BIOCRYST PHARMACEUTICALS, INC.-2025BCR01463

PATIENT
  Age: 80 Year

DRUGS (1)
  1. BEROTRALSTAT [Suspect]
     Active Substance: BEROTRALSTAT

REACTIONS (3)
  - Lip swelling [Unknown]
  - Pharyngeal swelling [Unknown]
  - Eye swelling [Unknown]
